FAERS Safety Report 10422350 (Version 1)
Quarter: 2014Q3

REPORT INFORMATION
  Report Type: Report from Study
  Country: BR (occurrence: BR)
  Receive Date: 20140901
  Receipt Date: 20140901
  Transmission Date: 20150326
  Serious: Yes (Life-Threatening, Hospitalization, Other)
  Sender: FDA-Public Use
  Company Number: PHHY2014BR106784

PATIENT
  Sex: Female
  Weight: 60 kg

DRUGS (5)
  1. RIVOTRIL [Concomitant]
     Active Substance: CLONAZEPAM
     Indication: DRUG WITHDRAWAL SYNDROME
     Dosage: 0.5 MG, BID
     Route: 048
     Dates: end: 20140824
  2. PRISTIQ EXTENDED RELEASE [Concomitant]
     Active Substance: DESVENLAFAXINE SUCCINATE
     Indication: ANTIDEPRESSANT THERAPY
     Dates: start: 201312
  3. NEOTIAPIM [Suspect]
     Active Substance: QUETIAPINE
     Indication: DEPENDENCE
     Dosage: 100 MG, QD
     Route: 048
     Dates: start: 201312
  4. PONTIN [Suspect]
     Active Substance: MEFENAMIC ACID
     Indication: SLEEP DISORDER
     Dosage: 500 MG, QD
     Route: 048
     Dates: start: 201312
  5. ZOLPIDEM [Concomitant]
     Active Substance: ZOLPIDEM\ZOLPIDEM TARTRATE
     Indication: SLEEP DISORDER

REACTIONS (6)
  - Balance disorder [Unknown]
  - Suicide attempt [Unknown]
  - Feeling abnormal [Unknown]
  - Dependence [Unknown]
  - Wrong technique in drug usage process [Unknown]
  - Drug withdrawal syndrome [Unknown]
